FAERS Safety Report 12818032 (Version 6)
Quarter: 2017Q1

REPORT INFORMATION
  Report Type: Report from Study
  Country: None (occurrence: ES)
  Receive Date: 20161005
  Receipt Date: 20170203
  Transmission Date: 20170428
  Serious: Yes (Other)
  Sender: FDA-Public Use
  Company Number: ES-ABBVIE-16P-144-1743828-00

PATIENT
  Age: 68 Year
  Sex: Female

DRUGS (2)
  1. DUODOPA [Suspect]
     Active Substance: CARBIDOPA\LEVODOPA
     Indication: PARKINSON^S DISEASE
     Dosage: MORNING DOSE: 14+3 ML??CONTINUOUS DOSE: 4 ML/H??EXTRA DOSE: 3.5 ML
     Route: 050
     Dates: start: 201605, end: 201611
  2. DUODOPA [Suspect]
     Active Substance: CARBIDOPA\LEVODOPA
     Dosage: CONTINUOS DOSE: 4.2 ML/H?MORNING DOSE: 14 ML?EXTRA DOSE: 3.5 ML
     Route: 050
     Dates: start: 201611

REACTIONS (5)
  - Hypertension [Recovered/Resolved]
  - Pain in extremity [Recovering/Resolving]
  - Weight decreased [Unknown]
  - Paraesthesia [Not Recovered/Not Resolved]
  - Carpal tunnel syndrome [Unknown]

NARRATIVE: CASE EVENT DATE: 20160901
